FAERS Safety Report 19821850 (Version 1)
Quarter: 2021Q3

REPORT INFORMATION
  Report Type: Spontaneous
  Country: US (occurrence: US)
  Receive Date: 20210913
  Receipt Date: 20210913
  Transmission Date: 20211014
  Serious: Yes (Other)
  Sender: FDA-Public Use
  Company Number: US-MYLANLABS-2021M1060826

PATIENT
  Age: 8 Year
  Sex: Male

DRUGS (1)
  1. VANCOMYCIN [Suspect]
     Active Substance: VANCOMYCIN
     Indication: ANTIBIOTIC PROPHYLAXIS
     Dosage: PHARMACEUTICAL FORM: SOLUTION
     Route: 065

REACTIONS (2)
  - CSF test abnormal [Recovered/Resolved]
  - Eosinophilia [Recovered/Resolved]
